FAERS Safety Report 6198866-0 (Version None)
Quarter: 2009Q2

REPORT INFORMATION
  Report Type: 
  Country: None (occurrence: None)
  Receive Date: 20090522
  Receipt Date: 20090512
  Transmission Date: 20091009
  Serious: Yes (Hospitalization)
  Sender: FDA-Public Use
  Company Number: US-BIOGENIDEC-2009BI014508

PATIENT
  Age: 21 Year
  Sex: Female

DRUGS (3)
  1. AVONEX [Suspect]
     Indication: MULTIPLE SCLEROSIS
     Route: 030
     Dates: end: 20090101
  2. BIRTH CONTROL HORMONES [Concomitant]
  3. COPAXONE [Concomitant]
     Indication: MULTIPLE SCLEROSIS
     Dates: start: 20060528

REACTIONS (3)
  - BLOOD PRESSURE INCREASED [None]
  - DRUG EFFECT INCREASED [None]
  - INFLUENZA LIKE ILLNESS [None]
